FAERS Safety Report 13964254 (Version 1)
Quarter: 2017Q3

REPORT INFORMATION
  Report Type: Spontaneous
  Country: US (occurrence: None)
  Receive Date: 20170913
  Receipt Date: 20170913
  Transmission Date: 20171128
  Serious: No
  Sender: FDA-Public Use
  Company Number: None

PATIENT
  Sex: Female
  Weight: 64.86 kg

DRUGS (1)
  1. METHOTREXATE UNKNOWN [Suspect]
     Active Substance: METHOTREXATE
     Indication: MIGRAINE

REACTIONS (1)
  - Skin infection [None]
